FAERS Safety Report 25316895 (Version 2)
Quarter: 2025Q4

REPORT INFORMATION
  Report Type: Spontaneous
  Country: JP (occurrence: JP)
  Receive Date: 20250515
  Receipt Date: 20251204
  Transmission Date: 20260118
  Serious: Yes (Death, Other)
  Sender: BOEHRINGER INGELHEIM
  Company Number: JP-NBI-2025-BI-027505

PATIENT

DRUGS (9)
  1. OFEV [Suspect]
     Active Substance: NINTEDANIB
     Indication: Scleroderma
  2. OFEV [Suspect]
     Active Substance: NINTEDANIB
     Indication: Idiopathic inflammatory myopathy
  3. OFEV [Suspect]
     Active Substance: NINTEDANIB
     Indication: Rheumatoid arthritis
  4. OFEV [Suspect]
     Active Substance: NINTEDANIB
     Indication: Mixed connective tissue disease
  5. OFEV [Suspect]
     Active Substance: NINTEDANIB
     Indication: Microscopic polyangiitis
  6. OFEV [Suspect]
     Active Substance: NINTEDANIB
     Indication: Sjogren^s syndrome
  7. OFEV [Suspect]
     Active Substance: NINTEDANIB
     Indication: Overlap syndrome
  8. OFEV [Suspect]
     Active Substance: NINTEDANIB
     Indication: Immunoglobulin G4 related disease
  9. OFEV [Suspect]
     Active Substance: NINTEDANIB
     Indication: Idiopathic pulmonary fibrosis

REACTIONS (10)
  - Death [Fatal]
  - Neoplasm malignant [Unknown]
  - Malaise [Unknown]
  - Hepatic function abnormal [Unknown]
  - Gastrointestinal disorder [Unknown]
  - Skin ulcer [Unknown]
  - Nausea [Unknown]
  - Diarrhoea [Unknown]
  - Weight decreased [Unknown]
  - Skin ulcer [Unknown]
